FAERS Safety Report 5858773-7 (Version None)
Quarter: 2008Q3

REPORT INFORMATION
  Report Type: 
  Country: None (occurrence: None)
  Receive Date: 20080826
  Receipt Date: 20080812
  Transmission Date: 20090109
  Serious: Yes (Hospitalization)
  Sender: FDA-Public Use
  Company Number: CH-ABBOTT-08P-151-0470446-00

PATIENT
  Age: 32 Year
  Sex: Female

DRUGS (5)
  1. HUMIRA [Suspect]
     Indication: INFERTILITY FEMALE
     Dosage: IRREGULARLY
     Route: 058
     Dates: start: 20040101, end: 20070401
  2. HUMIRA [Suspect]
     Indication: VULVITIS
  3. CABERGOLINE [Concomitant]
     Indication: HYPERPROLACTINAEMIA
  4. METFORMIN HYDROCHLORIDE [Concomitant]
     Indication: INSULIN RESISTANCE
  5. LEVOTHYROXINE SODIUM [Concomitant]
     Indication: AUTOIMMUNE THYROIDITIS

REACTIONS (6)
  - ASTROCYTOMA [None]
  - DIZZINESS [None]
  - HALLUCINATION, OLFACTORY [None]
  - INFLUENZA [None]
  - LACTATION DISORDER [None]
  - VISUAL IMPAIRMENT [None]
